FAERS Safety Report 12946785 (Version 2)
Quarter: 2016Q4

REPORT INFORMATION
  Report Type: Spontaneous
  Country: BR (occurrence: BR)
  Receive Date: 20161116
  Receipt Date: 20161128
  Transmission Date: 20170207
  Serious: Yes (Hospitalization)
  Sender: FDA-Public Use
  Company Number: BR-SA-2016SA204116

PATIENT
  Sex: Male
  Weight: 2.28 kg

DRUGS (2)
  1. LANTUS SOLOSTAR [Suspect]
     Active Substance: INSULIN GLARGINE
     Indication: FOETAL EXPOSURE TIMING UNSPECIFIED
     Route: 065
     Dates: start: 20161027, end: 20161104
  2. SOLOSTAR [Concomitant]
     Active Substance: DEVICE
     Indication: FOETAL EXPOSURE TIMING UNSPECIFIED
     Dates: start: 20161027, end: 20161104

REACTIONS (2)
  - Foetal exposure during pregnancy [Unknown]
  - Premature baby [Unknown]

NARRATIVE: CASE EVENT DATE: 20161027
